FAERS Safety Report 6214049-X (Version None)
Quarter: 2009Q2

REPORT INFORMATION
  Report Type: 
  Country: None (occurrence: None)
  Receive Date: 20090604
  Receipt Date: 20090528
  Transmission Date: 20091009
  Serious: Yes (Disabling)
  Sender: FDA-Public Use
  Company Number: GB-JNJFOC-20090600048

PATIENT
  Age: 30 Year
  Sex: Female
  Weight: 127 kg

DRUGS (7)
  1. TOPAMAX [Suspect]
     Indication: MIGRAINE PROPHYLAXIS
     Route: 048
  2. DIHYDROCODEINE BITARTRATE INJ [Concomitant]
     Indication: PAIN
     Route: 048
  3. RIZATRIPTAN BENZOATE [Concomitant]
     Indication: MIGRAINE
     Route: 048
  4. RANITIDINE [Concomitant]
     Indication: GASTROOESOPHAGEAL REFLUX DISEASE
     Route: 048
  5. SERETIDE [Concomitant]
     Route: 055
  6. ALVERINE CITRATE [Concomitant]
     Indication: GASTRIC DISORDER
     Route: 048
  7. VENTOLIN [Concomitant]
     Route: 055

REACTIONS (2)
  - BLINDNESS TRANSIENT [None]
  - PAIN [None]
